FAERS Safety Report 20529943 (Version 1)
Quarter: 2022Q1

REPORT INFORMATION
  Report Type: Spontaneous
  Country: US (occurrence: US)
  Receive Date: 20220301
  Receipt Date: 20220301
  Transmission Date: 20220424
  Serious: Yes (Hospitalization, Other)
  Sender: FDA-Public Use
  Company Number: US-SANOFI-00987141

PATIENT
  Age: 58 Year
  Sex: Male

DRUGS (5)
  1. APIDRA SOLOSTAR [Suspect]
     Active Substance: INSULIN GLULISINE
     Indication: Diabetes mellitus
     Dosage: 40 IU;3-4 TIMES DAILY
  2. TOUJEO MAX [Suspect]
     Active Substance: INSULIN GLARGINE
     Dosage: 80 IU, QD
  3. METFORMIN [Suspect]
     Active Substance: METFORMIN HYDROCHLORIDE
     Indication: Diabetes mellitus
     Dosage: UNK
  4. COVID-19 VACCINE [Concomitant]
     Indication: Prophylaxis
     Dosage: UNK
  5. OXYCONTIN [Concomitant]
     Active Substance: OXYCODONE HYDROCHLORIDE
     Dosage: UNK

REACTIONS (27)
  - Illness [Unknown]
  - Atrial fibrillation [Unknown]
  - Adrenal gland cancer [Unknown]
  - Hyperaldosteronism [Unknown]
  - Neuropathy peripheral [Unknown]
  - Renal failure [Unknown]
  - Lactic acidosis [Unknown]
  - COVID-19 pneumonia [Unknown]
  - Pancreatitis [Unknown]
  - Spinal stenosis [Unknown]
  - Migraine [Unknown]
  - Back pain [Unknown]
  - Sinusitis [Unknown]
  - Influenza [Unknown]
  - Retching [Unknown]
  - Vomiting [Unknown]
  - COVID-19 [Unknown]
  - Bronchitis [Unknown]
  - SARS-CoV-2 test positive [Unknown]
  - Intervertebral disc degeneration [Unknown]
  - Platelet count decreased [Unknown]
  - Immune system disorder [Unknown]
  - Abnormal faeces [Unknown]
  - Blood glucose increased [Unknown]
  - Cardiac ablation [Unknown]
  - Gallbladder operation [Unknown]
  - Inappropriate schedule of product administration [Unknown]
